FAERS Safety Report 6731629-3 (Version None)
Quarter: 2010Q2

REPORT INFORMATION
  Report Type: 
  Country: None (occurrence: None)
  Receive Date: 20100518
  Receipt Date: 20100518
  Transmission Date: 20101027
  Serious: Yes (Other)
  Sender: FDA-Public Use
  Company Number: None

PATIENT
  Age: 31 Year
  Sex: Female
  Weight: 91 kg

DRUGS (2)
  1. LAMICTAL [Suspect]
     Indication: BIPOLAR DISORDER
     Dosage: 200 MG BID PO
     Route: 048
     Dates: start: 20100421, end: 20100507
  2. FANAPT [Suspect]
     Indication: SCHIZOPHRENIA
     Dosage: 1 MG BID PO
     Route: 048
     Dates: start: 20100421, end: 20100507

REACTIONS (6)
  - CONFUSIONAL STATE [None]
  - DELIRIUM [None]
  - INCORRECT DOSE ADMINISTERED [None]
  - MOVEMENT DISORDER [None]
  - NEUROLEPTIC MALIGNANT SYNDROME [None]
  - RHABDOMYOLYSIS [None]
